FAERS Safety Report 19182070 (Version 2)
Quarter: 2021Q2

REPORT INFORMATION
  Report Type: Report from Study
  Country: None (occurrence: CA)
  Receive Date: 20210427
  Receipt Date: 20210615
  Transmission Date: 20210717
  Serious: Yes (Other)
  Sender: FDA-Public Use
  Company Number: CA-ABBVIE-21K-028-3873502-00

PATIENT
  Sex: Male

DRUGS (1)
  1. HUMIRA [Suspect]
     Active Substance: ADALIMUMAB
     Indication: CROHN^S DISEASE
     Route: 058
     Dates: start: 20150124

REACTIONS (4)
  - Malaise [Not Recovered/Not Resolved]
  - Crohn^s disease [Unknown]
  - Urticaria [Recovered/Resolved]
  - Large intestine perforation [Unknown]

NARRATIVE: CASE EVENT DATE: 2019
